FAERS Safety Report 22292640 (Version 4)
Quarter: 2024Q3

REPORT INFORMATION
  Report Type: Report from Study
  Country: FR (occurrence: FR)
  Receive Date: 20230508
  Receipt Date: 20240718
  Transmission Date: 20241017
  Serious: Yes (Death, Other)
  Sender: AUROBINDO
  Company Number: FR-PFIZER INC-202200150734

PATIENT
  Age: 43 Year
  Sex: Male

DRUGS (4)
  1. PREGABALIN [Suspect]
     Active Substance: PREGABALIN
     Indication: Product used for unknown indication
     Dosage: UNK
     Route: 065
  2. DOLOPHINE [Suspect]
     Active Substance: METHADONE HYDROCHLORIDE
     Indication: Product used for unknown indication
     Dosage: UNK
     Route: 065
  3. CLONAZEPAM [Suspect]
     Active Substance: CLONAZEPAM
     Indication: Product used for unknown indication
     Dosage: 11 DOSAGE FORM(11 TABLETS)
     Route: 065
  4. COCAINE [Suspect]
     Active Substance: COCAINE
     Indication: Product used for unknown indication
     Dosage: UNK
     Route: 065

REACTIONS (9)
  - Death [Fatal]
  - Pulmonary oedema [Fatal]
  - Drug level above therapeutic [Fatal]
  - Toxicity to various agents [Fatal]
  - Poisoning [Fatal]
  - Aspiration [Fatal]
  - Intentional product misuse [Fatal]
  - Drug abuse [Not Recovered/Not Resolved]
  - Drug dependence [Unknown]
